FAERS Safety Report 12180403 (Version 1)
Quarter: 2016Q1

REPORT INFORMATION
  Report Type: Spontaneous
  Country: US (occurrence: None)
  Receive Date: 20160314
  Receipt Date: 20160314
  Transmission Date: 20160526
  Serious: Yes (Other)
  Sender: FDA-Public Use
  Company Number: None

PATIENT
  Age: 62 Year
  Sex: Male
  Weight: 99.79 kg

DRUGS (3)
  1. RANITIDINE [Concomitant]
     Active Substance: RANITIDINE\RANITIDINE HYDROCHLORIDE
  2. HYDROXYCHLOROQUINE 200MG TABS [Suspect]
     Active Substance: HYDROXYCHLOROQUINE
     Indication: BLOOD TEST ABNORMAL
     Dosage: 2 PILLS TWICE DAILY MOUTH
     Route: 048
     Dates: start: 20160204, end: 20160226
  3. TAMSULOSIN [Concomitant]
     Active Substance: TAMSULOSIN

REACTIONS (1)
  - Back pain [None]

NARRATIVE: CASE EVENT DATE: 20160205
